FAERS Safety Report 16342776 (Version 1)
Quarter: 2019Q2

REPORT INFORMATION
  Report Type: Spontaneous
  Country: US (occurrence: US)
  Receive Date: 20190416
  Receipt Date: 20190416
  Transmission Date: 20190711
  Serious: No
  Sender: FDA-Public Use
  Company Number: None

PATIENT
  Age: 71 Year
  Sex: Male
  Weight: 88.6 kg

DRUGS (3)
  1. DEXAMETHASONE. [Suspect]
     Active Substance: DEXAMETHASONE
     Dates: end: 20190406
  2. LENALIDOMIDE (CC-5013) [Suspect]
     Active Substance: LENALIDOMIDE
     Dates: end: 20190408
  3. VELCADE [Suspect]
     Active Substance: BORTEZOMIB
     Dates: end: 20190405

REACTIONS (2)
  - Renal neoplasm [None]
  - Neoplasm progression [None]

NARRATIVE: CASE EVENT DATE: 20190405
